FAERS Safety Report 9130995 (Version 1)
Quarter: 2013Q1

REPORT INFORMATION
  Report Type: Other
  Country: TW (occurrence: TW)
  Receive Date: 20130301
  Receipt Date: 20130301
  Transmission Date: 20140127
  Serious: Yes (Life-Threatening)
  Sender: FDA-Public Use
  Company Number: TW-BRISTOL-MYERS SQUIBB COMPANY-17403148

PATIENT
  Age: 41 Year
  Sex: Male

DRUGS (1)
  1. POTASSIUM CHLORIDE [Suspect]
     Dosage: ALSO TAKEN IV 30 MMOL,20 MMOL,40 MMOL.
     Route: 048

REACTIONS (5)
  - Hypokalaemia [Unknown]
  - Atrioventricular block complete [Unknown]
  - Cardiogenic shock [Unknown]
  - Respiratory failure [Unknown]
  - Hyperkalaemia [Unknown]
